FAERS Safety Report 7787691-2 (Version None)
Quarter: 2011Q3

REPORT INFORMATION
  Report Type: 
  Country: None (occurrence: None)
  Receive Date: 20110929
  Receipt Date: 20110920
  Transmission Date: 20111222
  Serious: Yes (Other)
  Sender: FDA-Public Use
  Company Number: US-ASTRAZENECA-2011SE56734

PATIENT
  Age: 51 Year
  Sex: Female

DRUGS (2)
  1. VIMOVO [Suspect]
     Route: 048
  2. TOPROL-XL [Concomitant]

REACTIONS (3)
  - HYPERTENSION [None]
  - ARRHYTHMIA [None]
  - CHEST PAIN [None]
